FAERS Safety Report 13573162 (Version 1)
Quarter: 2017Q2

REPORT INFORMATION
  Report Type: Spontaneous
  Country: US (occurrence: US)
  Receive Date: 20170523
  Receipt Date: 20170523
  Transmission Date: 20170830
  Serious: No
  Sender: FDA-Public Use
  Company Number: PHEH2017US015395

PATIENT
  Sex: Female

DRUGS (3)
  1. TAXOTERE [Suspect]
     Active Substance: DOCETAXEL
     Indication: BREAST CANCER STAGE II
     Route: 065
     Dates: start: 20130113, end: 20130531
  2. DOCETAXEL. [Suspect]
     Active Substance: DOCETAXEL
     Indication: BREAST CANCER STAGE III
     Route: 065
     Dates: start: 20130113, end: 20130531
  3. DOCETAXEL. [Suspect]
     Active Substance: DOCETAXEL
     Indication: BREAST CANCER STAGE II
     Route: 065
     Dates: start: 20130113, end: 20130531

REACTIONS (7)
  - Anhedonia [Unknown]
  - Discomfort [Unknown]
  - Anxiety [Unknown]
  - Alopecia [Unknown]
  - Emotional distress [Unknown]
  - Injury [Unknown]
  - Deformity [Unknown]
